FAERS Safety Report 9913939 (Version 3)
Quarter: 2014Q1

REPORT INFORMATION
  Report Type: Spontaneous
  Country: US (occurrence: US)
  Receive Date: 20140220
  Receipt Date: 20140303
  Transmission Date: 20141002
  Serious: Yes (Other)
  Sender: FDA-Public Use
  Company Number: US-PFIZER INC-2014036140

PATIENT
  Sex: Male

DRUGS (1)
  1. LYRICA [Suspect]
     Dosage: UNK
     Dates: end: 20140211

REACTIONS (6)
  - Coronary artery disease [Unknown]
  - Decreased appetite [Unknown]
  - Cold sweat [Unknown]
  - Nausea [Unknown]
  - Insomnia [Unknown]
  - Abnormal dreams [Unknown]
